FAERS Safety Report 9540823 (Version 4)
Quarter: 2013Q4

REPORT INFORMATION
  Report Type: Report from Study
  Country: US (occurrence: US)
  Receive Date: 20130920
  Receipt Date: 20131204
  Transmission Date: 20140711
  Serious: Yes (Death, Hospitalization)
  Sender: FDA-Public Use
  Company Number: US-BRISTOL-MYERS SQUIBB COMPANY-18884502

PATIENT
  Age: 81 Year
  Sex: Male
  Weight: 69.5 kg

DRUGS (1)
  1. IPILIMUMAB [Suspect]
     Indication: MALIGNANT MELANOMA
     Dosage: 4 DOSES/3 WEEKS?TOTAL DOSE: 680MG;?LAST DOSE: 24APR2013
     Route: 042
     Dates: start: 20130220, end: 20130424

REACTIONS (5)
  - Death [Fatal]
  - Constipation [Not Recovered/Not Resolved]
  - Enterocolitis [Not Recovered/Not Resolved]
  - Cognitive disorder [Not Recovered/Not Resolved]
  - Aphasia [Not Recovered/Not Resolved]
